FAERS Safety Report 5243011-9 (Version None)
Quarter: 2007Q1

REPORT INFORMATION
  Report Type: 
  Country: None (occurrence: None)
  Receive Date: 20070215
  Receipt Date: 20070209
  Transmission Date: 20070707
  Serious: Yes (Other)
  Sender: FDA-Public Use
  Company Number: 235965

PATIENT
  Age: 38 Year
  Sex: Female

DRUGS (8)
  1. XOLAIR [Suspect]
     Indication: ASTHMA
     Dosage: 300 MG, Q4W, SUBCUTANEOUS
     Route: 058
     Dates: start: 20060623
  2. THEOPHYLLINE [Concomitant]
  3. ADVAIR DISKUS 100/50 [Concomitant]
  4. PROTONIX [Concomitant]
  5. FLONASE [Concomitant]
  6. ASTELIN [Concomitant]
  7. ALLEGRA [Concomitant]
  8. IMMUNOTHERAPY (ALLERGENIC EXTRACTS) [Concomitant]

REACTIONS (1)
  - HAEMOLYSIS [None]
